FAERS Safety Report 14818278 (Version 4)
Quarter: 2021Q2

REPORT INFORMATION
  Report Type: Report from Study
  Country: PL (occurrence: PL)
  Receive Date: 20180427
  Receipt Date: 20210420
  Transmission Date: 20210716
  Serious: Yes (Death)
  Sender: FDA-Public Use
  Company Number: PL-ROCHE-2114389

PATIENT
  Age: 70 Year
  Sex: Female
  Weight: 53 kg

DRUGS (9)
  1. DIUVER [Concomitant]
     Active Substance: TORSEMIDE
     Indication: HYPERTENSION
     Route: 048
     Dates: start: 20180327
  2. TALVOSILEN [Concomitant]
     Active Substance: ACETAMINOPHEN\CODEINE PHOSPHATE
     Indication: COUGH
     Route: 048
     Dates: start: 20180327
  3. GLUCOPHAGE [Concomitant]
     Active Substance: METFORMIN HYDROCHLORIDE
     Indication: DIABETES MELLITUS
     Route: 048
     Dates: start: 20180327
  4. NOLIPREL [Concomitant]
     Indication: HYPERTENSION
     Route: 048
     Dates: start: 20180327
  5. TRAMAL [Concomitant]
     Active Substance: TRAMADOL
     Indication: PAIN
     Route: 048
     Dates: start: 20180327
  6. DEXAMETHASONE. [Concomitant]
     Active Substance: DEXAMETHASONE
     Indication: ASTHENIA
     Dates: start: 20180327
  7. ALECTINIB. [Suspect]
     Active Substance: ALECTINIB
     Indication: NON-SMALL CELL LUNG CANCER
     Dosage: DOSE OF ALECTINIB (900 MG) ADMINISTERED PRIOR TO SAE ONSET 21/APR/2018
     Route: 048
     Dates: start: 20180419
  8. ATORIS [Concomitant]
     Active Substance: ATORVASTATIN CALCIUM
     Indication: PROPHYLAXIS
     Route: 048
     Dates: start: 20180327
  9. KALIPOZ [Concomitant]
     Active Substance: POTASSIUM CHLORIDE
     Indication: PROPHYLAXIS
     Route: 048
     Dates: start: 20180327

REACTIONS (1)
  - Death [Fatal]

NARRATIVE: CASE EVENT DATE: 20180422
